FAERS Safety Report 9464646 (Version 2)
Quarter: 2013Q4

REPORT INFORMATION
  Report Type: Spontaneous
  Country: US (occurrence: US)
  Receive Date: 20130819
  Receipt Date: 20131009
  Transmission Date: 20140711
  Serious: No
  Sender: FDA-Public Use
  Company Number: US-PFIZER INC-2013237887

PATIENT
  Age: 66 Year
  Sex: Male
  Weight: 81.63 kg

DRUGS (2)
  1. ADVIL PM [Suspect]
     Indication: SLEEP DISORDER
     Dosage: 400 MG (2 CAPSULES OF 200MG), ONCE DAILY
     Route: 048
  2. ADVIL PM [Suspect]
     Dosage: 200 MG, DAILY EVERY NIGHT
     Route: 048
     Dates: start: 2013

REACTIONS (3)
  - Intentional drug misuse [Unknown]
  - Drug ineffective [Unknown]
  - Headache [Unknown]
